FAERS Safety Report 18954808 (Version 1)
Quarter: 2021Q1

REPORT INFORMATION
  Report Type: Spontaneous
  Country: NZ (occurrence: NZ)
  Receive Date: 20210301
  Receipt Date: 20210301
  Transmission Date: 20210420
  Serious: Yes (Life-Threatening, Other)
  Sender: FDA-Public Use
  Company Number: NZ-ASTRAZENECA-2021A087680

PATIENT
  Age: 700 Month
  Sex: Female
  Weight: 108 kg

DRUGS (3)
  1. HYDROCORTISONE. [Concomitant]
     Active Substance: HYDROCORTISONE
     Indication: ADRENAL INSUFFICIENCY
     Dosage: 15.0MG UNKNOWN
     Route: 048
     Dates: start: 20201221
  2. FUROSEMIDE. [Concomitant]
     Active Substance: FUROSEMIDE
     Indication: COMPLICATIONS OF TRANSPLANTED HEART
     Route: 048
     Dates: start: 20201113, end: 20210101
  3. IMFINZI [Suspect]
     Active Substance: DURVALUMAB
     Indication: SMALL CELL LUNG CANCER
     Route: 042
     Dates: start: 20200804, end: 20201215

REACTIONS (3)
  - Type 1 diabetes mellitus [Not Recovered/Not Resolved]
  - Diabetic ketoacidosis [Recovered/Resolved]
  - Adrenal insufficiency [Unknown]

NARRATIVE: CASE EVENT DATE: 202012
